FAERS Safety Report 12234216 (Version 2)
Quarter: 2016Q2

REPORT INFORMATION
  Report Type: Spontaneous
  Country: US (occurrence: US)
  Receive Date: 20160404
  Receipt Date: 20160517
  Transmission Date: 20160815
  Serious: Yes (Death)
  Sender: FDA-Public Use
  Company Number: US-PFIZER INC-2016169649

PATIENT
  Age: 75 Year
  Sex: Female
  Weight: 57.1 kg

DRUGS (1)
  1. IBRANCE [Suspect]
     Active Substance: PALBOCICLIB
     Indication: BREAST CANCER
     Dosage: 100 MG, CYCLIC (D1-D21 Q28D)
     Route: 048
     Dates: start: 20160311

REACTIONS (4)
  - Fatigue [Unknown]
  - Disease progression [Fatal]
  - Breast cancer [Fatal]
  - Constipation [Unknown]
